FAERS Safety Report 18341203 (Version 2)
Quarter: 2020Q4

REPORT INFORMATION
  Report Type: Spontaneous
  Country: US (occurrence: US)
  Receive Date: 20201003
  Receipt Date: 20201203
  Transmission Date: 20210113
  Serious: No
  Sender: FDA-Public Use
  Company Number: US-SA-2020SA267848

PATIENT

DRUGS (2)
  1. DUPIXENT [Suspect]
     Active Substance: DUPILUMAB
     Dosage: 300 MG, QOW
     Route: 058
     Dates: start: 20200923
  2. DUPIXENT [Suspect]
     Active Substance: DUPILUMAB
     Indication: DERMATITIS ATOPIC
     Dosage: 600 MG, 1X
     Route: 058
     Dates: start: 20200909, end: 20200909

REACTIONS (5)
  - Swelling of eyelid [Unknown]
  - Blepharitis [Unknown]
  - Pain in extremity [Unknown]
  - Oral herpes [Unknown]
  - Pain [Unknown]

NARRATIVE: CASE EVENT DATE: 2020
